FAERS Safety Report 24035251 (Version 2)
Quarter: 2024Q4

REPORT INFORMATION
  Report Type: Spontaneous
  Country: GB (occurrence: GB)
  Receive Date: 20240701
  Receipt Date: 20241126
  Transmission Date: 20250114
  Serious: No
  Sender: PFIZER
  Company Number: GB-PFIZER INC-202400202408

PATIENT

DRUGS (1)
  1. GENOTROPIN [Suspect]
     Active Substance: SOMATROPIN
     Dosage: UNK

REACTIONS (2)
  - Device information output issue [Unknown]
  - Device delivery system issue [Unknown]
